FAERS Safety Report 6143043-2 (Version None)
Quarter: 2009Q2

REPORT INFORMATION
  Report Type: 
  Country: None (occurrence: None)
  Receive Date: 20090401
  Receipt Date: 20090401
  Transmission Date: 20091009
  Serious: Yes (Hospitalization)
  Sender: FDA-Public Use
  Company Number: None

PATIENT
  Age: 33 Year
  Sex: Female
  Weight: 61.05 kg

DRUGS (1)
  1. GABAPENTIN [Suspect]
     Dosage: 100 MG TID PO
     Route: 048
     Dates: start: 20081009, end: 20081204

REACTIONS (1)
  - DIZZINESS [None]
